FAERS Safety Report 6906216-4 (Version None)
Quarter: 2010Q3

REPORT INFORMATION
  Report Type: 
  Country: None (occurrence: None)
  Receive Date: 20100804
  Receipt Date: 20100727
  Transmission Date: 20110219
  Serious: Yes (Other)
  Sender: FDA-Public Use
  Company Number: US-PERRIGO-10US011677

PATIENT
  Sex: Female
  Weight: 83.9 kg

DRUGS (1)
  1. ACETAMINOPHEN [Suspect]
     Indication: PAIN
     Dosage: 1-2 TABLETS, PRN
     Route: 048
     Dates: start: 20090727, end: 20100722

REACTIONS (3)
  - PHOTOSENSITIVITY REACTION [None]
  - PRURITUS GENERALISED [None]
  - URTICARIA [None]
